FAERS Safety Report 6444002-2 (Version None)
Quarter: 2009Q4

REPORT INFORMATION
  Report Type: 
  Country: None (occurrence: None)
  Receive Date: 20091116
  Receipt Date: 20091116
  Transmission Date: 20100525
  Serious: Yes (Life-Threatening, Hospitalization, Disabling)
  Sender: FDA-Public Use
  Company Number: None

PATIENT
  Sex: Female
  Weight: 72.7 kg

DRUGS (6)
  1. PROGRAF [Suspect]
     Indication: LIVER TRANSPLANT
     Dosage: 40 MG BID PO
     Route: 048
     Dates: start: 20091023, end: 20091027
  2. NEORAL [Concomitant]
  3. MEDROL [Concomitant]
  4. BACTRIM [Concomitant]
  5. HUMALOG [Concomitant]
  6. ACTIGAL [Concomitant]

REACTIONS (2)
  - OSMOTIC DEMYELINATION SYNDROME [None]
  - SUBDURAL HAEMORRHAGE [None]
